FAERS Safety Report 4850913-1 (Version None)
Quarter: 2005Q4

REPORT INFORMATION
  Report Type: 
  Country: None (occurrence: None)
  Receive Date: 20051212
  Receipt Date: 20051024
  Transmission Date: 20060501
  Serious: Yes (Other)
  Sender: FDA-Public Use
  Company Number: DE-GLAXOSMITHKLINE-D0047790A

PATIENT
  Age: 45 Year
  Sex: Female
  Weight: 69 kg

DRUGS (3)
  1. QUILONUM RETARD [Suspect]
     Dosage: 1TAB TWICE PER DAY
     Route: 048
     Dates: start: 20010612
  2. BISOPROLOL FUMARATE [Concomitant]
     Indication: HYPERTENSION
     Dosage: .5TAB UNKNOWN
     Route: 048
     Dates: start: 20020101
  3. MULTI VITAMINS + TRACE ELEMENTS [Concomitant]
     Dosage: 1TAB PER DAY
     Route: 065
     Dates: start: 20050101

REACTIONS (2)
  - GLAUCOMA [None]
  - INTRAOCULAR PRESSURE TEST ABNORMAL [None]
